FAERS Safety Report 5152110-1 (Version None)
Quarter: 2006Q4

REPORT INFORMATION
  Report Type: 
  Country: None (occurrence: None)
  Receive Date: 20061113
  Receipt Date: 20061113
  Transmission Date: 20070319
  Serious: Yes (Hospitalization)
  Sender: FDA-Public Use
  Company Number: None

PATIENT
  Age: 67 Year
  Sex: Female
  Weight: 53.5244 kg

DRUGS (2)
  1. CHLOROQUINE PHOSPHATE [Suspect]
     Indication: SJOGREN'S SYNDROME
     Dosage: 250MG PO QDAY
     Route: 048
     Dates: start: 20060701, end: 20060901
  2. HYDROXY CHLOROQUINE GENERIC [Suspect]
     Indication: SJOGREN'S SYNDROME
     Dosage: 200MG PO BID
     Dates: start: 20060401, end: 20060501

REACTIONS (4)
  - DIZZINESS [None]
  - LOSS OF CONSCIOUSNESS [None]
  - PHARMACEUTICAL PRODUCT COMPLAINT [None]
  - STOMACH DISCOMFORT [None]
